FAERS Safety Report 20359445 (Version 3)
Quarter: 2022Q1

REPORT INFORMATION
  Report Type: Report from Study
  Country: US (occurrence: US)
  Receive Date: 20220121
  Receipt Date: 20220324
  Transmission Date: 20220423
  Serious: Yes (Other)
  Sender: FDA-Public Use
  Company Number: US-NOVARTISTESTPH-NVSC2022US011658

PATIENT
  Sex: Male

DRUGS (1)
  1. ADAKVEO [Suspect]
     Active Substance: CRIZANLIZUMAB-TMCA
     Indication: Sickle cell disease
     Dosage: UNK, QMO
     Route: 042
     Dates: start: 20211101

REACTIONS (5)
  - Sickle cell anaemia with crisis [Unknown]
  - COVID-19 [Unknown]
  - Rhinorrhoea [Unknown]
  - Headache [Unknown]
  - Abdominal pain upper [Unknown]
